FAERS Safety Report 20299885 (Version 1)
Quarter: 2022Q1

REPORT INFORMATION
  Report Type: Spontaneous
  Country: US (occurrence: None)
  Receive Date: 20220105
  Receipt Date: 20220105
  Transmission Date: 20220423
  Serious: Yes (Hospitalization)
  Sender: FDA-Public Use
  Company Number: None

PATIENT
  Age: 80 Year
  Sex: Female
  Weight: 92.9 kg

DRUGS (1)
  1. LISOCABTAGENE MARALEUCEL [Suspect]
     Active Substance: LISOCABTAGENE MARALEUCEL
     Indication: Diffuse large B-cell lymphoma
     Dosage: FREQUENCY : ONCE;?
     Route: 040
     Dates: start: 20211115, end: 20211115

REACTIONS (5)
  - Dyspnoea [None]
  - Asthenia [None]
  - Fatigue [None]
  - Palpitations [None]
  - Anaemia [None]

NARRATIVE: CASE EVENT DATE: 20220103
